FAERS Safety Report 6235525-X (Version None)
Quarter: 2009Q2

REPORT INFORMATION
  Report Type: 
  Country: None (occurrence: None)
  Receive Date: 20090618
  Receipt Date: 20080828
  Transmission Date: 20091009
  Serious: No
  Sender: FDA-Public Use
  Company Number: US-ASTRAZENECA-2008UW17731

PATIENT
  Age: 60 Year
  Sex: Female

DRUGS (2)
  1. RHINOCORT [Suspect]
     Indication: RHINITIS ALLERGIC
     Dosage: 32UG 2 SPRAYS EACH NOSTRIL TWICE DAILY
     Route: 045
     Dates: start: 20080825
  2. PREDNISONE [Concomitant]

REACTIONS (2)
  - CONSTIPATION [None]
  - INSOMNIA [None]
